FAERS Safety Report 18390674 (Version 1)
Quarter: 2020Q4

REPORT INFORMATION
  Report Type: Spontaneous
  Country: US (occurrence: US)
  Receive Date: 20201016
  Receipt Date: 20201016
  Transmission Date: 20210114
  Serious: Yes (Other)
  Sender: FDA-Public Use
  Company Number: US-SA-2020SA281797

PATIENT

DRUGS (1)
  1. ZANTAC 150 (RANITIDINE HYDROCHLORIDE) [Suspect]
     Active Substance: RANITIDINE HYDROCHLORIDE
     Dosage: 150 MG, QD
     Route: 048
     Dates: start: 2010, end: 2019

REACTIONS (4)
  - Exposure to toxic agent [Unknown]
  - Injury [Unknown]
  - Bladder cancer [Unknown]
  - Anxiety [Unknown]

NARRATIVE: CASE EVENT DATE: 2018
